FAERS Safety Report 17421309 (Version 2)
Quarter: 2021Q3

REPORT INFORMATION
  Report Type: Report from Study
  Country: US (occurrence: US)
  Receive Date: 20200214
  Receipt Date: 20210713
  Transmission Date: 20211014
  Serious: Yes (Hospitalization)
  Sender: FDA-Public Use
  Company Number: PHHY2019US145343

PATIENT
  Age: 13 Year
  Sex: Male
  Weight: 53 kg

DRUGS (6)
  1. FOLIC ACID. [Concomitant]
     Active Substance: FOLIC ACID
     Indication: THALASSAEMIA
  2. JADENU [Suspect]
     Active Substance: DEFERASIROX
     Indication: IRON OVERLOAD
     Dosage: 90 MG, QD
     Route: 048
     Dates: start: 20150722
  3. JADENU [Suspect]
     Active Substance: DEFERASIROX
     Dosage: UNK
     Route: 065
     Dates: start: 20160425, end: 20160513
  4. JADENU [Suspect]
     Active Substance: DEFERASIROX
     Dosage: UNK
     Route: 065
     Dates: start: 20170522
  5. JADENU [Suspect]
     Active Substance: DEFERASIROX
     Dosage: 90 MG, QD
     Route: 048
     Dates: start: 20170907
  6. FOLIC ACID. [Concomitant]
     Active Substance: FOLIC ACID
     Indication: THALASSAEMIA ALPHA
     Dosage: 1 MG, QD
     Route: 048
     Dates: start: 20131212

REACTIONS (7)
  - Cholecystitis acute [Recovered/Resolved]
  - Cholelithiasis [Recovered/Resolved]
  - Abdominal pain [Unknown]
  - Dermatitis contact [Unknown]
  - Iron overload [Unknown]
  - Nasopharyngitis [Unknown]
  - Condition aggravated [Unknown]

NARRATIVE: CASE EVENT DATE: 20160301
